FAERS Safety Report 5141924-X (Version None)
Quarter: 2006Q4

REPORT INFORMATION
  Report Type: 
  Country: None (occurrence: None)
  Receive Date: 20061102
  Receipt Date: 20040105
  Transmission Date: 20070319
  Serious: Yes (Hospitalization)
  Sender: FDA-Public Use
  Company Number: PHHO2004JP00523

PATIENT
  Age: 55 Year
  Sex: Male
  Weight: 55.3 kg

DRUGS (22)
  1. ENTACAPONE [Suspect]
     Indication: PARKINSON'S DISEASE
     Dosage: 700 MG
     Dates: start: 20040107, end: 20040107
  2. ENTACAPONE [Suspect]
     Dosage: 800 MG
     Dates: start: 20040108, end: 20050620
  3. ENTACAPONE [Suspect]
     Dosage: 800 MG
     Route: 048
     Dates: start: 20030410, end: 20040106
  4. ENTACAPONE [Suspect]
     Dosage: 700 MG
     Dates: start: 20050621, end: 20050815
  5. ENTACAPONE [Suspect]
     Dosage: 400 MG
     Dates: start: 20050816, end: 20050912
  6. ENTACAPONE [Suspect]
     Dosage: 700 MG
     Dates: start: 20050913, end: 20060523
  7. ENTACAPONE [Suspect]
     Dosage: 600 MG
     Dates: start: 20060524, end: 20060524
  8. ENTACAPONE [Suspect]
     Dosage: 500 MG
     Dates: start: 20060525, end: 20060525
  9. ENTACAPONE [Suspect]
     Dosage: 400 MG
     Dates: start: 20060526, end: 20060526
  10. ENTACAPONE [Suspect]
     Dosage: 400 MG
     Dates: start: 20060527, end: 20060616
  11. ENTACAPONE [Suspect]
     Dosage: 200 MG
     Dates: start: 20060617, end: 20060626
  12. ENTACAPONE [Suspect]
     Dosage: 100 MG
     Dates: start: 20060627, end: 20060822
  13. PARLODEL [Concomitant]
     Indication: PARKINSON'S DISEASE
  14. PURSENNID [Concomitant]
     Indication: CONSTIPATION
  15. NEO DOPASTON [Concomitant]
     Indication: PARKINSON'S DISEASE
  16. CABASER [Concomitant]
     Indication: PARKINSON'S DISEASE
  17. ARTANE [Concomitant]
     Indication: PARKINSON'S DISEASE
  18. PERMAX [Concomitant]
     Indication: PARKINSON'S DISEASE
  19. SELEGILINE HYDROCHLORIDE [Concomitant]
     Indication: PARKINSON'S DISEASE
  20. POLLAKISU [Concomitant]
     Indication: NEUROGENIC BLADDER
  21. RIVOTRIL [Concomitant]
     Indication: PARKINSON'S DISEASE
  22. CEFAMEZIN [Concomitant]
     Indication: INFECTION PROPHYLAXIS

REACTIONS (12)
  - CONDITION AGGRAVATED [None]
  - DEEP BRAIN STIMULATION [None]
  - DYSKINESIA [None]
  - HAEMORRHAGE [None]
  - INGUINAL HERNIA [None]
  - INGUINAL HERNIA REPAIR [None]
  - PARKINSON'S DISEASE [None]
  - POST PROCEDURAL HAEMATOMA [None]
  - PYREXIA [None]
  - SCROTAL HAEMATOCOELE [None]
  - SWELLING [None]
  - WOUND COMPLICATION [None]
